FAERS Safety Report 24748520 (Version 1)
Quarter: 2024Q4

REPORT INFORMATION
  Report Type: Spontaneous
  Country: GB (occurrence: GB)
  Receive Date: 20241218
  Receipt Date: 20241218
  Transmission Date: 20250115
  Serious: Yes (Other)
  Sender: ESPERION THERAPEUTICS
  Company Number: GB-MHRA-TPP24033324C23916088YC1732744088313

PATIENT

DRUGS (11)
  1. BEMPEDOIC ACID\EZETIMIBE [Suspect]
     Active Substance: BEMPEDOIC ACID\EZETIMIBE
     Indication: Ill-defined disorder
     Dosage: UNK
     Route: 065
  2. ESTRADIOL [Concomitant]
     Active Substance: ESTRADIOL
     Indication: Ill-defined disorder
     Dosage: 1 WEEK, APPLY TWICE WEEKLY
     Route: 065
     Dates: start: 20241016
  3. AZELASTINE [Concomitant]
     Active Substance: AZELASTINE
     Indication: Ill-defined disorder
     Dosage: ONE PUFF TWICE DAILY
     Route: 065
     Dates: start: 20241114, end: 20241115
  4. DOXYCYCLINE [Concomitant]
     Active Substance: DOXYCYCLINE
     Indication: Ill-defined disorder
     Dosage: TAKE TWO CAPSULES NOW ON DAY 1 THEN TAKE ONE CA...
     Route: 065
     Dates: start: 20241115, end: 20241120
  5. BECLOMETHASONE DIPROPIONATE [Concomitant]
     Active Substance: BECLOMETHASONE DIPROPIONATE
     Indication: Ill-defined disorder
     Dosage: INHALE TWO PUFFS TWICE A DAY (PLEASE RETURN YOU...
     Dates: start: 20241127
  6. HUXD3 [Concomitant]
     Indication: Ill-defined disorder
     Dosage: 2 DOSAGE FORM, ONCE EVERY 1 WK (TAKE TWO CAPSULES ONCE WEEKLY FOR 7 WEEKS)
     Route: 065
     Dates: start: 20241127
  7. ALBUTEROL [Concomitant]
     Active Substance: ALBUTEROL
     Indication: Ill-defined disorder
     Dosage: UNK UNK, AS NEEDED (INHALE ONE TO TWO DOSES AS NEEDED (PLEASE RETUR...)
     Dates: start: 20241127
  8. BUTYLSCOPOLAMINE BROMIDE [Concomitant]
     Active Substance: BUTYLSCOPOLAMINE BROMIDE
     Indication: Ill-defined disorder
     Dosage: 1 DOSAGE FORM, TID (TAKE ONE THREE TIMES DAILY CAN INCREASE TO 2QDS...)
     Route: 065
     Dates: start: 20230518
  9. ATENOLOL [Concomitant]
     Active Substance: ATENOLOL
     Indication: Ill-defined disorder
     Dosage: 1 DOSAGE FORM, QD (1 TABLET ONCE A DAY)
     Route: 065
     Dates: start: 20240116
  10. ESOMEPRAZOLE [Concomitant]
     Active Substance: ESOMEPRAZOLE
     Indication: Ill-defined disorder
     Dosage: 1 DOSAGE FORM, BID (TAKE ONE TWICE DAILY)
     Route: 065
     Dates: start: 20240116
  11. BEMPEDOIC ACID [Concomitant]
     Active Substance: BEMPEDOIC ACID
     Indication: Ill-defined disorder
     Dosage: 1 DOSAGE FORM, QD (TAKE ONE TABLET ONCE A DAY)
     Route: 065
     Dates: start: 20240213, end: 20241127

REACTIONS (3)
  - Musculoskeletal chest pain [Unknown]
  - Abdominal pain [Recovered/Resolved]
  - Diarrhoea [Unknown]
